FAERS Safety Report 6641394-6 (Version None)
Quarter: 2010Q1

REPORT INFORMATION
  Report Type: 
  Country: None (occurrence: None)
  Receive Date: 20100318
  Receipt Date: 20100309
  Transmission Date: 20100710
  Serious: Yes (Other)
  Sender: FDA-Public Use
  Company Number: IL-ROCHE-686520

PATIENT
  Sex: Female
  Weight: 79 kg

DRUGS (2)
  1. TOCILIZUMAB [Suspect]
     Indication: RHEUMATOID ARTHRITIS
     Dosage: FORM: INFUSION SOLUTION LAST DOSE PRIOR TO SAE: 21 JAN 2010
     Route: 042
     Dates: start: 20060109, end: 20100215
  2. BLINDED TOCILIZUMAB [Suspect]
     Indication: RHEUMATOID ARTHRITIS
     Dosage: DOSE BLINDED. AS PER PROTOCOL THE PATIENT WAS PREVIOUSLY ENROLLED IN BLINDED STUDY WA17822.
     Route: 042

REACTIONS (1)
  - BREAST CANCER [None]
